FAERS Safety Report 6793220-2 (Version None)
Quarter: 2010Q2

REPORT INFORMATION
  Report Type: 
  Country: None (occurrence: None)
  Receive Date: 20100624
  Receipt Date: 20100324
  Transmission Date: 20101027
  Serious: Yes (Other)
  Sender: FDA-Public Use
  Company Number: US-MYLANLABS-2009S1014814

PATIENT
  Age: 54 Year
  Sex: Female

DRUGS (8)
  1. CLOZAPINE [Suspect]
     Route: 048
     Dates: end: 20090914
  2. CLOZAPINE [Suspect]
     Route: 048
     Dates: end: 20090914
  3. ZYPREXA [Concomitant]
     Route: 048
  4. TRAZODONE HYDROCHLORIDE [Concomitant]
     Route: 048
  5. MIRTAZAPINE [Concomitant]
     Route: 048
  6. HALDOL [Concomitant]
     Route: 048
  7. DEPAKOTE [Concomitant]
     Route: 048
  8. BUSPIRONE HCL [Concomitant]
     Route: 048

REACTIONS (1)
  - GRANULOCYTOPENIA [None]
